FAERS Safety Report 5953358-6 (Version None)
Quarter: 2008Q4

REPORT INFORMATION
  Report Type: 
  Country: None (occurrence: None)
  Receive Date: 20081031
  Receipt Date: 20080414
  Transmission Date: 20090506
  Serious: Yes (Other)
  Sender: FDA-Public Use
  Company Number: US-WYE-H03629508

PATIENT
  Age: 55 Year
  Sex: Female
  Weight: 47.22 kg

DRUGS (6)
  1. PREMARIN [Suspect]
     Indication: VULVOVAGINAL DRYNESS
     Dosage: 1 APPLICATION DAILY, VAGINAL ; 1 APPLICATION DAILY (DOSE NOT SPECIFIED), VAGINAL
     Route: 067
     Dates: start: 20080324, end: 20080326
  2. PREMARIN [Suspect]
     Indication: VULVOVAGINAL DRYNESS
     Dosage: 1 APPLICATION DAILY, VAGINAL ; 1 APPLICATION DAILY (DOSE NOT SPECIFIED), VAGINAL
     Route: 067
     Dates: start: 20080409, end: 20080411
  3. LOVASTATIN (LOVSTATIN) [Concomitant]
  4. LEVOTHYROXINE SODIUM [Concomitant]
  5. LORAZEPAM [Concomitant]
  6. FLUOXETINE [Concomitant]

REACTIONS (2)
  - APPLICATION SITE IRRITATION [None]
  - APPLICATION SITE SWELLING [None]
